FAERS Safety Report 7324922-7 (Version None)
Quarter: 2011Q1

REPORT INFORMATION
  Report Type: 
  Country: None (occurrence: None)
  Receive Date: 20110301
  Receipt Date: 20110218
  Transmission Date: 20110831
  Serious: Yes (Hospitalization)
  Sender: FDA-Public Use
  Company Number: BR-GENENTECH-303094

PATIENT
  Sex: Female
  Weight: 71 kg

DRUGS (10)
  1. SYNTHROID [Concomitant]
     Indication: PRODUCT USED FOR UNKNOWN INDICATION
     Dosage: 125 A?G, UNK
  2. SIMVASTATIN [Concomitant]
     Indication: PRODUCT USED FOR UNKNOWN INDICATION
     Dosage: 20 MG, UNK
  3. MABTHERA [Suspect]
     Dosage: 100 MG/10 ML, UNK
     Route: 042
     Dates: start: 20100610, end: 20100729
  4. OMEPRAZOLE [Concomitant]
     Indication: PRODUCT USED FOR UNKNOWN INDICATION
     Dosage: 40 MG, UNK
  5. OSCAL D [Concomitant]
     Indication: PRODUCT USED FOR UNKNOWN INDICATION
     Dosage: 500 MG, UNK
  6. ALPRAZOLAM [Concomitant]
     Indication: PRODUCT USED FOR UNKNOWN INDICATION
     Dosage: 2 MG, UNK
  7. CODATEN [Concomitant]
     Indication: PRODUCT USED FOR UNKNOWN INDICATION
  8. MABTHERA [Suspect]
     Indication: RHEUMATOID ARTHRITIS
     Dosage: 50 ML, Q6M
     Route: 042
     Dates: start: 20100510
  9. NIMESULIDE [Concomitant]
     Indication: PRODUCT USED FOR UNKNOWN INDICATION
  10. FLUXENE [Concomitant]
     Indication: PRODUCT USED FOR UNKNOWN INDICATION
     Dosage: 20 MG, TID

REACTIONS (9)
  - MUSCULOSKELETAL DISORDER [None]
  - HYPERSENSITIVITY [None]
  - WOUND [None]
  - SUTURE RUPTURE [None]
  - ERYTHEMA [None]
  - APPETITE DISORDER [None]
  - FLUID REPLACEMENT [None]
  - BACTERIAL INFECTION [None]
  - RASH [None]
